FAERS Safety Report 4588723-5 (Version None)
Quarter: 2005Q1

REPORT INFORMATION
  Report Type: 
  Country: None (occurrence: None)
  Receive Date: 20050222
  Receipt Date: 20050218
  Transmission Date: 20050727
  Serious: Yes (Other)
  Sender: FDA-Public Use
  Company Number: PHBS2005GR02472

PATIENT
  Age: 68 Year
  Sex: Female

DRUGS (3)
  1. TRILEPTAL [Suspect]
     Indication: BIPOLAR DISORDER
     Dosage: 1200 MG/D
     Route: 048
     Dates: start: 20040603, end: 20040619
  2. ALOPERIDIN [Concomitant]
     Dosage: 20 MG/D
     Route: 065
     Dates: start: 20030910
  3. ZYPREXA [Concomitant]
     Dosage: 15 MG/D
     Route: 065
     Dates: start: 20040321

REACTIONS (1)
  - AGRANULOCYTOSIS [None]
